FAERS Safety Report 25954622 (Version 1)
Quarter: 2025Q4

REPORT INFORMATION
  Report Type: Spontaneous
  Country: US (occurrence: US)
  Receive Date: 20251024
  Receipt Date: 20251024
  Transmission Date: 20260117
  Serious: No
  Sender: ABBVIE
  Company Number: US-ABBVIE-6515673

PATIENT

DRUGS (1)
  1. RISANKIZUMAB [Suspect]
     Active Substance: RISANKIZUMAB
     Indication: Crohn^s disease
     Route: 058

REACTIONS (8)
  - Nausea [Unknown]
  - Product quality issue [Unknown]
  - Dizziness [Unknown]
  - Back pain [Unknown]
  - Adverse drug reaction [Unknown]
  - Fatigue [Unknown]
  - Product storage error [Unknown]
  - Anxiety [Unknown]
